FAERS Safety Report 10262522 (Version 1)
Quarter: 2014Q2

REPORT INFORMATION
  Report Type: Spontaneous
  Country: US (occurrence: US)
  Receive Date: 20140626
  Receipt Date: 20140626
  Transmission Date: 20141212
  Serious: Yes (Life-Threatening, Other)
  Sender: FDA-Public Use
  Company Number: PHEH2014US012773

PATIENT
  Age: 75 Year
  Sex: Female

DRUGS (1)
  1. RECLAST [Suspect]
     Dosage: UNK UKN, UNK
     Route: 042
     Dates: start: 20140606

REACTIONS (14)
  - Feeling abnormal [Unknown]
  - Heart rate irregular [Unknown]
  - Blood pressure decreased [Unknown]
  - Tremor [Unknown]
  - Headache [Unknown]
  - Body temperature increased [Unknown]
  - Blood pressure increased [Unknown]
  - Renal pain [Unknown]
  - Chills [Unknown]
  - Musculoskeletal chest pain [Unknown]
  - Neck pain [Unknown]
  - Back pain [Unknown]
  - Influenza like illness [Unknown]
  - Nausea [Unknown]
